FAERS Safety Report 23311031 (Version 1)
Quarter: 2023Q4

REPORT INFORMATION
  Report Type: Spontaneous
  Country: FR (occurrence: FR)
  Receive Date: 20231218
  Receipt Date: 20231218
  Transmission Date: 20240109
  Serious: Yes (Other)
  Sender: FDA-Public Use
  Company Number: FR-ALKEM LABORATORIES LIMITED-FR-ALKEM-2023-04325

PATIENT
  Age: 66 Year
  Sex: Male

DRUGS (6)
  1. MYCOPHENOLATE MOFETIL [Interacting]
     Active Substance: MYCOPHENOLATE MOFETIL
     Indication: Vasculitis
     Dosage: 750 MILLIGRAM, BID (BIS IN DIE)
     Route: 065
  2. DASABUVIR [Interacting]
     Active Substance: DASABUVIR
     Indication: Hepatitis viral
     Dosage: UNK
     Route: 065
  3. OMBITASVIR [Interacting]
     Active Substance: OMBITASVIR
     Indication: Hepatitis viral
     Dosage: UNK
     Route: 065
  4. PARITAPREVIR [Interacting]
     Active Substance: PARITAPREVIR
     Indication: Hepatitis viral
     Dosage: UNK
     Route: 065
  5. PREDNISONE [Suspect]
     Active Substance: PREDNISONE
     Indication: Vasculitis
     Dosage: 7.5 MILLIGRAM, OD (ONCE DAILY)
     Route: 065
  6. RITONAVIR [Interacting]
     Active Substance: RITONAVIR
     Indication: Hepatitis viral
     Dosage: UNK
     Route: 065

REACTIONS (2)
  - Hepatitis C [Unknown]
  - Drug interaction [Unknown]
